FAERS Safety Report 19928560 (Version 1)
Quarter: 2021Q4

REPORT INFORMATION
  Report Type: Spontaneous
  Country: US (occurrence: US)
  Receive Date: 20211006
  Receipt Date: 20211006
  Transmission Date: 20220303
  Serious: Yes (Hospitalization)
  Sender: FDA-Public Use
  Company Number: None

PATIENT
  Age: 62 Year
  Sex: Female

DRUGS (15)
  1. ORENCIA [Suspect]
     Active Substance: ABATACEPT
     Indication: Rheumatoid arthritis
     Dosage: INJECT 1 SYRINGE UNDER THE SKIN (SUBCUTANEOUS INJECTION) ONCE WEEKLY
     Route: 058
  2. ARAVA TAB [Concomitant]
  3. ATORVASTATIN [Concomitant]
     Active Substance: ATORVASTATIN
  4. FOLIC ACID TAB [Concomitant]
  5. GABAPENTIN [Concomitant]
     Active Substance: GABAPENTIN
  6. GLIMEPIRIDE TAB [Concomitant]
  7. JANUVIA TAB [Concomitant]
  8. JARDIANCE TAB [Concomitant]
  9. LISINOPRIL [Concomitant]
     Active Substance: LISINOPRIL
  10. MELOXICAM TAB [Concomitant]
  11. PANTOPRAZOLE TAB [Concomitant]
  12. ROBAXIN TAB [Concomitant]
  13. SYNVISC-ONE [Concomitant]
     Active Substance: HYLAN G-F 20
  14. TRAMADOL HCL TAB [Concomitant]
  15. TRULICITY [Concomitant]
     Active Substance: DULAGLUTIDE

REACTIONS (1)
  - Infection [None]

NARRATIVE: CASE EVENT DATE: 20210501
